FAERS Safety Report 5194721-3 (Version None)
Quarter: 2006Q4

REPORT INFORMATION
  Report Type: 
  Country: None (occurrence: None)
  Receive Date: 20061226
  Receipt Date: 20061226
  Transmission Date: 20070319
  Serious: Yes (Hospitalization)
  Sender: FDA-Public Use
  Company Number: None

PATIENT
  Age: 41 Year
  Sex: Female
  Weight: 58 kg

DRUGS (1)
  1. DEPO-SUBQ PROVERA 104 [Suspect]
     Indication: ENDOMETRIOSIS
     Dosage: 104 MG/ 0.65 ML Q 3 MONTHS SUB Q
     Route: 058
     Dates: start: 20061020

REACTIONS (5)
  - CHEST DISCOMFORT [None]
  - DRUG INEFFECTIVE [None]
  - FATIGUE [None]
  - PERICARDITIS [None]
  - SENSATION OF PRESSURE [None]
